FAERS Safety Report 18124809 (Version 2)
Quarter: 2020Q3

REPORT INFORMATION
  Report Type: Spontaneous
  Country: US (occurrence: US)
  Receive Date: 20200807
  Receipt Date: 20200807
  Transmission Date: 20201103
  Serious: No
  Sender: FDA-Public Use
  Company Number: US-GLAXOSMITHKLINE-US2020AMR135825

PATIENT
  Sex: Female

DRUGS (1)
  1. ZEJULA [Suspect]
     Active Substance: NIRAPARIB
     Indication: OVARIAN CANCER
     Dosage: 200 MG, QD
     Route: 048
     Dates: start: 20200708

REACTIONS (10)
  - Abdominal pain upper [Unknown]
  - Blood creatinine increased [Unknown]
  - Dehydration [Unknown]
  - Renal function test abnormal [Unknown]
  - Decreased appetite [Unknown]
  - Insomnia [Unknown]
  - Blood pressure increased [Unknown]
  - Lethargy [Unknown]
  - Hyperhidrosis [Unknown]
  - Constipation [Unknown]
